FAERS Safety Report 5977006-4 (Version None)
Quarter: 2008Q4

REPORT INFORMATION
  Report Type: 
  Country: None (occurrence: None)
  Receive Date: 20081202
  Receipt Date: 20081202
  Transmission Date: 20090506
  Serious: Yes (Other)
  Sender: FDA-Public Use
  Company Number: None

PATIENT
  Sex: Male
  Weight: 121.1104 kg

DRUGS (4)
  1. CITALOPRAM HYDROBROMIDE [Suspect]
     Indication: MAJOR DEPRESSION
     Dosage: 40 MG DAILY P.O.
     Route: 048
  2. ALPRAZOLAM [Suspect]
     Dosage: 1 MG TID P.O.
     Route: 048
  3. SEROQUEL [Suspect]
     Dosage: 200MG HS P.O.
     Route: 048
  4. GEODON [Suspect]
     Dosage: 80 MG BID P.O.
     Route: 048

REACTIONS (1)
  - NAUSEA [None]
